FAERS Safety Report 7339485-X (Version None)
Quarter: 2011Q1

REPORT INFORMATION
  Report Type: 
  Country: None (occurrence: None)
  Receive Date: 20110308
  Receipt Date: 20110121
  Transmission Date: 20110831
  Serious: No
  Sender: FDA-Public Use
  Company Number: US-AMGEN-USASP2011002077

PATIENT
  Age: 57 Year
  Sex: Female

DRUGS (6)
  1. NEXIUM [Concomitant]
  2. PREDNISONE TAB [Concomitant]
  3. PROLIA [Suspect]
     Indication: OSTEOPOROSIS POSTMENOPAUSAL
     Dosage: 60 MG, Q6MO
     Dates: start: 20101201
  4. MYFORTIC                           /01275101/ [Concomitant]
  5. METOPROLOL [Concomitant]
  6. ESTRACE [Concomitant]

REACTIONS (4)
  - HYPOAESTHESIA [None]
  - ARTHRALGIA [None]
  - PARAESTHESIA [None]
  - MUSCULOSKELETAL PAIN [None]
